FAERS Safety Report 9897781 (Version 4)
Quarter: 2014Q2

REPORT INFORMATION
  Report Type: Spontaneous
  Country: DE (occurrence: DE)
  Receive Date: 20140214
  Receipt Date: 20140414
  Transmission Date: 20141212
  Serious: Yes (Other)
  Sender: FDA-Public Use
  Company Number: DE-NOVOPROD-393637

PATIENT
  Age: 70 Year
  Sex: Male
  Weight: 135 kg

DRUGS (5)
  1. NOVOMIX 30 FLEXPEN [Suspect]
     Indication: TYPE 2 DIABETES MELLITUS
     Dosage: 110 IE, QD
     Route: 065
     Dates: start: 20130923, end: 20131115
  2. NOVOMIX 30 FLEXPEN [Suspect]
     Dosage: UNK
     Route: 065
  3. LYRICA [Concomitant]
     Indication: PAIN
     Dosage: UNK
  4. TRANXILIUM [Concomitant]
     Indication: PAIN
     Dosage: UNK
  5. ATOSIL                             /00033002/ [Concomitant]
     Indication: PAIN
     Dosage: UNK

REACTIONS (8)
  - Cerebrovascular accident [Not Recovered/Not Resolved]
  - Gangrene [Not Recovered/Not Resolved]
  - Diabetic arthropathy [Not Recovered/Not Resolved]
  - Fatigue [Not Recovered/Not Resolved]
  - Angina pectoris [Not Recovered/Not Resolved]
  - Hyperhidrosis [Not Recovered/Not Resolved]
  - Oedema peripheral [Not Recovered/Not Resolved]
  - Hyperglycaemia [Recovered/Resolved]
